FAERS Safety Report 6658022-6 (Version None)
Quarter: 2010Q1

REPORT INFORMATION
  Report Type: 
  Country: None (occurrence: None)
  Receive Date: 20100330
  Receipt Date: 20100317
  Transmission Date: 20100710
  Serious: No
  Sender: FDA-Public Use
  Company Number: US-SOLVAY-00210001648

PATIENT
  Age: 64 Year
  Sex: Female
  Weight: 59.09 kg

DRUGS (6)
  1. OTHER UNKNOWN ANTI-AGING PRODUCTS [Concomitant]
     Indication: PROPHYLAXIS
     Dosage: DAILY DOSE:  UNKNOWN
     Route: 065
  2. MELATONIN [Concomitant]
     Indication: SLEEP DISORDER
     Dosage: DAILY DOSE:  UNKNOWN
     Route: 048
  3. VITAMINS [Concomitant]
     Indication: PROPHYLAXIS
     Dosage: DAILY DOSE:  UNKNOWN
     Route: 048
  4. TESTOSTERONE VAGINAL CREAM [Concomitant]
     Indication: PROPHYLAXIS
     Dosage: DAILY DOSE:  UNKNOWN
     Route: 067
     Dates: start: 20091201
  5. UNKNOWN ESTROGEN [Concomitant]
     Indication: PROPHYLAXIS
     Dosage: DAILY DOSE:  UNKNOWN
     Route: 065
  6. ANDROGEL [Suspect]
     Indication: ACCIDENTAL EXPOSURE
     Dosage: DAILY DOSE: 5 GRAM(S), VIA PUMP
     Route: 062
     Dates: start: 20100201

REACTIONS (1)
  - BLOOD TESTOSTERONE INCREASED [None]
